FAERS Safety Report 18650794 (Version 1)
Quarter: 2020Q4

REPORT INFORMATION
  Report Type: Spontaneous
  Country: PT (occurrence: PT)
  Receive Date: 20201223
  Receipt Date: 20201223
  Transmission Date: 20210114
  Serious: Yes (Other)
  Sender: FDA-Public Use
  Company Number: PT-AUROBINDO-AUR-APL-2020-062178

PATIENT
  Age: 10 Year
  Sex: Male

DRUGS (1)
  1. MONTELUKAST [Suspect]
     Active Substance: MONTELUKAST SODIUM
     Indication: VERNAL KERATOCONJUNCTIVITIS
     Dosage: UNK
     Route: 065

REACTIONS (1)
  - Drug ineffective [Unknown]
